FAERS Safety Report 13549336 (Version 1)
Quarter: 2017Q2

REPORT INFORMATION
  Report Type: Spontaneous
  Country: US (occurrence: US)
  Receive Date: 20170515
  Receipt Date: 20170515
  Transmission Date: 20170830
  Serious: Yes (Life-Threatening, Hospitalization, Other)
  Sender: FDA-Public Use
  Company Number: None

PATIENT
  Age: 55 Year
  Sex: Male

DRUGS (1)
  1. LYRICA [Suspect]
     Active Substance: PREGABALIN

REACTIONS (21)
  - Tic [None]
  - Heart rate increased [None]
  - Fear [None]
  - Cerebral disorder [None]
  - Toxicity to various agents [None]
  - Speech disorder [None]
  - Urticaria [None]
  - Pain [None]
  - Tremor [None]
  - Suicide attempt [None]
  - Lacrimation increased [None]
  - Blindness [None]
  - Memory impairment [None]
  - Headache [None]
  - Gingival ulceration [None]
  - Dehydration [None]
  - Delirium [None]
  - Irritability [None]
  - Affective disorder [None]
  - Confusional state [None]
  - Depression [None]

NARRATIVE: CASE EVENT DATE: 20170327
